FAERS Safety Report 5359479-3 (Version None)
Quarter: 2007Q2

REPORT INFORMATION
  Report Type: 
  Country: None (occurrence: None)
  Receive Date: 20070615
  Receipt Date: 20070605
  Transmission Date: 20071010
  Serious: Yes (Hospitalization)
  Sender: FDA-Public Use
  Company Number: FR-PFIZER INC-2007046344

PATIENT
  Age: 85 Year
  Sex: Male

DRUGS (5)
  1. ZYVOX [Suspect]
     Indication: SKIN INFECTION
  2. HEPARIN CALCIUM [Concomitant]
  3. FOSFOMYCIN SODIUM [Concomitant]
  4. VANCOMYCIN HCL [Concomitant]
  5. TEICOPLANIN [Concomitant]

REACTIONS (6)
  - ANAEMIA [None]
  - BLOOD ALKALINE PHOSPHATASE INCREASED [None]
  - GAMMA-GLUTAMYLTRANSFERASE INCREASED [None]
  - LIPASE INCREASED [None]
  - RENAL FAILURE [None]
  - THROMBOCYTOPENIA [None]
